FAERS Safety Report 20488687 (Version 6)
Quarter: 2023Q1

REPORT INFORMATION
  Report Type: Report from Study
  Country: US (occurrence: US)
  Receive Date: 20220218
  Receipt Date: 20230211
  Transmission Date: 20230417
  Serious: No
  Sender: FDA-Public Use
  Company Number: US-NOVARTISTESTPH-NVSC2022US036956

PATIENT
  Sex: Male

DRUGS (1)
  1. COSENTYX [Suspect]
     Active Substance: SECUKINUMAB
     Indication: Product used for unknown indication
     Dosage: UNK
     Route: 065

REACTIONS (6)
  - Psoriasis [Unknown]
  - Pruritus [Unknown]
  - Rash [Unknown]
  - Product distribution issue [Unknown]
  - Headache [Unknown]
  - Product dose omission issue [Unknown]
